FAERS Safety Report 5381599-8 (Version None)
Quarter: 2007Q2

REPORT INFORMATION
  Report Type: 
  Country: None (occurrence: None)
  Receive Date: 20070629
  Receipt Date: 20070312
  Transmission Date: 20071010
  Serious: Yes (Hospitalization)
  Sender: FDA-Public Use
  Company Number: A03200503910

PATIENT
  Sex: Female

DRUGS (5)
  1. AMBIEN [Suspect]
     Indication: INSOMNIA
     Dosage: 12.5 MG QD - ORAL
     Route: 048
     Dates: start: 20050101, end: 20050101
  2. FLUOXETINE HYDROCHLORIDE [Concomitant]
  3. ACETAMINOPHEN [Concomitant]
  4. HYDROCODONE BITARTRATE [Concomitant]
  5. ALPRAZOLAM [Concomitant]

REACTIONS (10)
  - ABNORMAL BEHAVIOUR [None]
  - AMNESIA [None]
  - COMMUNICATION DISORDER [None]
  - CONTUSION [None]
  - GAIT DISTURBANCE [None]
  - HALLUCINATION [None]
  - INSOMNIA [None]
  - PANIC ATTACK [None]
  - SLEEP WALKING [None]
  - TIC [None]
